FAERS Safety Report 22344657 (Version 5)
Quarter: 2024Q1

REPORT INFORMATION
  Report Type: Report from Study
  Country: DE (occurrence: DE)
  Receive Date: 20230519
  Receipt Date: 20240301
  Transmission Date: 20240410
  Serious: Yes (Other)
  Sender: FDA-Public Use
  Company Number: DE-002147023-NVSC2023DE017430

PATIENT
  Age: 70 Year
  Sex: Female
  Weight: 70 kg

DRUGS (4)
  1. FULVESTRANT [Suspect]
     Active Substance: FULVESTRANT
     Indication: Hormone receptor positive HER2 negative breast cancer
     Dosage: DOSAGE TEXT: 250 MG, QMO (DAILY DOSE)
     Route: 058
     Dates: start: 20200916
  2. KISQALI [Suspect]
     Active Substance: RIBOCICLIB
     Indication: Hormone receptor positive HER2 negative breast cancer
     Dosage: DOSAGE TEXT: 600 MG, QD (DAILY DOSE, SCHEDULE 21 DAYS INTAKE, 7 DAYS BREAK)
     Route: 048
     Dates: start: 20201007, end: 20221213
  3. KISQALI [Suspect]
     Active Substance: RIBOCICLIB
     Indication: Hormone receptor positive HER2 negative breast cancer
     Dosage: DOSAGE TEXT: 400 MG, QD (DAILY DOSE, SCHEDULE 21 DAYS INTAKE, 7 DAYS BREAK)
     Route: 048
     Dates: start: 20200916, end: 20201006
  4. KISQALI [Suspect]
     Active Substance: RIBOCICLIB
     Indication: Hormone receptor positive HER2 negative breast cancer
     Dosage: DOSAGE TEXT: 400 MG, QD (DAILY DOSE, SCHEDULE 21 DAYS INTAKE, 7 DAYS BREAK)
     Route: 048
     Dates: start: 20221214

REACTIONS (1)
  - Oesophageal candidiasis [Recovered/Resolved]

NARRATIVE: CASE EVENT DATE: 20221202
